FAERS Safety Report 17358436 (Version 2)
Quarter: 2020Q1

REPORT INFORMATION
  Report Type: Report from Study
  Country: US (occurrence: US)
  Receive Date: 20200201
  Receipt Date: 20200204
  Transmission Date: 20200409
  Serious: Yes (Other)
  Sender: FDA-Public Use
  Company Number: US-BAYER-2020-014628

PATIENT
  Age: 54 Year
  Sex: Male

DRUGS (3)
  1. ASPIRIN 81 MG [Suspect]
     Active Substance: ASPIRIN
     Indication: CARDIOVASCULAR DISORDER
     Dosage: 5 MG
  2. APIXABAN [Suspect]
     Active Substance: APIXABAN
  3. WARFARIN [Suspect]
     Active Substance: WARFARIN
     Indication: ATRIAL FIBRILLATION
     Dosage: UNK

REACTIONS (2)
  - Ruptured cerebral aneurysm [None]
  - Labelled drug-drug interaction medication error [None]
